FAERS Safety Report 9502094 (Version 1)
Quarter: 2013Q3

REPORT INFORMATION
  Report Type: Spontaneous
  Country: US (occurrence: US)
  Receive Date: 20130905
  Receipt Date: 20130905
  Transmission Date: 20140515
  Serious: No
  Sender: FDA-Public Use
  Company Number: US-009507513-1309USA001378

PATIENT
  Age: 62 Year
  Sex: Male

DRUGS (2)
  1. ISENTRESS [Suspect]
     Indication: HIV INFECTION
     Dosage: UNK, BID
     Route: 048
  2. COMPLERA [Concomitant]

REACTIONS (2)
  - Anxiety [Recovering/Resolving]
  - Poor quality sleep [Recovering/Resolving]
